FAERS Safety Report 7267105-1 (Version None)
Quarter: 2011Q1

REPORT INFORMATION
  Report Type: 
  Country: None (occurrence: None)
  Receive Date: 20110201
  Receipt Date: 20110126
  Transmission Date: 20110831
  Serious: Yes (Hospitalization, Disabling)
  Sender: FDA-Public Use
  Company Number: PHHO2010IT04273

PATIENT
  Sex: Female
  Weight: 62 kg

DRUGS (4)
  1. VITAMIN D [Concomitant]
  2. CALCIUM [Concomitant]
  3. ZOLEDRONATE [Concomitant]
  4. LETROZOLE [Suspect]
     Indication: BREAST CANCER
     Dosage: 2.5 MG, QD
     Route: 048
     Dates: start: 20071031

REACTIONS (3)
  - FEMUR FRACTURE [None]
  - SURGERY [None]
  - TRAUMATIC FRACTURE [None]
